FAERS Safety Report 4715150-X (Version None)
Quarter: 2005Q3

REPORT INFORMATION
  Report Type: 
  Country: None (occurrence: None)
  Receive Date: 20050715
  Receipt Date: 20050530
  Transmission Date: 20060218
  Serious: Yes (Other)
  Sender: FDA-Public Use
  Company Number: CH-GLAXOSMITHKLINE-B0383380A

PATIENT
  Age: 61 Year
  Sex: Male

DRUGS (5)
  1. LAMICTAL [Suspect]
     Indication: EPILEPSY
     Dosage: 100MG TWICE PER DAY
     Route: 048
     Dates: start: 20050314
  2. MARCUMAR [Suspect]
     Indication: DRUG USE FOR UNKNOWN INDICATION
     Route: 048
  3. INHIBACE [Concomitant]
     Dosage: 5MG PER DAY
     Route: 048
  4. METOPROLOL [Concomitant]
     Dosage: 50MG PER DAY
     Route: 048
  5. PHENYTOIN [Concomitant]
     Indication: EPILEPSY
     Dates: start: 20041001, end: 20050314

REACTIONS (2)
  - COAGULOPATHY [None]
  - DRUG INTERACTION [None]
